FAERS Safety Report 14403208 (Version 4)
Quarter: 2018Q2

REPORT INFORMATION
  Report Type: Report from Study
  Country: FR (occurrence: FR)
  Receive Date: 20180117
  Receipt Date: 20180604
  Transmission Date: 20180711
  Serious: Yes (Congenital Anomaly, Other)
  Sender: FDA-Public Use
  Company Number: FR-TEVA-2018-FR-847341

PATIENT
  Age: 0 Day
  Sex: Male
  Weight: .61 kg

DRUGS (3)
  1. BARACLUDE [Suspect]
     Active Substance: ENTECAVIR
     Indication: HEPATITIS B
     Dosage: .5 MILLIGRAM DAILY;
     Route: 064
     Dates: start: 20111007, end: 20150311
  2. BARACLUDE [Suspect]
     Active Substance: ENTECAVIR
     Indication: FOETAL EXPOSURE DURING PREGNANCY
     Route: 064
     Dates: start: 20111107, end: 20150311
  3. EMTRICITABINE/TENOFOVIR DISOPROXIL FUMARATE [Suspect]
     Active Substance: EMTRICITABINE\TENOFOVIR DISOPROXIL FUMARATE
     Indication: HEPATITIS B
     Dosage: 245 MILLIGRAM DAILY; MATERNAL DOSE: 245 MG, QD
     Route: 064
     Dates: start: 20150311, end: 20150705

REACTIONS (4)
  - Foetal hypokinesia [Unknown]
  - Foetal heart rate abnormal [Unknown]
  - Foetal exposure during pregnancy [Recovered/Resolved]
  - Neonatal respiratory distress [Unknown]

NARRATIVE: CASE EVENT DATE: 20150311
